FAERS Safety Report 10184849 (Version 1)
Quarter: 2014Q2

REPORT INFORMATION
  Report Type: Spontaneous
  Country: US (occurrence: None)
  Receive Date: 20140520
  Receipt Date: 20140520
  Transmission Date: 20141212
  Serious: Yes (Hospitalization)
  Sender: FDA-Public Use
  Company Number: None

PATIENT
  Age: 31 Year
  Sex: Female
  Weight: 50.35 kg

DRUGS (3)
  1. PARAGARD IUD SUPPOSED TO BE HORMONE FREE PARAGARD [Suspect]
     Dates: start: 20060307, end: 20140204
  2. ONE-A-DAY VITAMIN FOR WOMEN DAILY [Concomitant]
  3. ALAVERT [Concomitant]

REACTIONS (6)
  - Pain [None]
  - Haemorrhage [None]
  - Abdominal distension [None]
  - Embedded device [None]
  - Device dislocation [None]
  - Surgical procedure repeated [None]
